FAERS Safety Report 8773299 (Version 2)
Quarter: 2012Q4

REPORT INFORMATION
  Report Type: 
  Country: US (occurrence: US)
  Receive Date: 20120907
  Receipt Date: 20121026
  Transmission Date: 20130627
  Serious: Yes (Other)
  Sender: FDA-Public Use
  Company Number: US-NOVOPROD-359080

PATIENT
  Age: 55 Year
  Sex: Female
  Weight: 68.03 kg

DRUGS (3)
  1. ACTIVELLA [Suspect]
     Indication: MENOPAUSAL SYMPTOMS
     Dosage: UNK UNK, qd
     Route: 048
     Dates: start: 2008, end: 201011
  2. ESTRADIOL [Suspect]
     Indication: MENOPAUSAL SYMPTOMS
     Dosage: 0.5 mg, qd
     Route: 048
     Dates: start: 201011, end: 201203
  3. NORETHINDRONE ACETATE [Suspect]
     Indication: MENOPAUSAL SYMPTOMS
     Dosage: 0.1 mg, qd
     Route: 048
     Dates: start: 201011, end: 201203

REACTIONS (2)
  - Endometrial adenocarcinoma [Recovered/Resolved]
  - Uterine stenosis [Unknown]
